FAERS Safety Report 8678886 (Version 2)
Quarter: 2014Q2

REPORT INFORMATION
  Report Type: Spontaneous
  Country: US (occurrence: US)
  Receive Date: 20120723
  Receipt Date: 20140626
  Transmission Date: 20141212
  Serious: Yes (Death)
  Sender: FDA-Public Use
  Company Number: US-GLAXOSMITHKLINE-A0985631A

PATIENT
  Sex: Male

DRUGS (1)
  1. AVANDIA [Suspect]
     Indication: DIABETES MELLITUS
     Dosage: 2MG TWICE PER DAY
     Route: 048
     Dates: start: 2006, end: 20100916

REACTIONS (5)
  - Myocardial infarction [Fatal]
  - Cardio-respiratory arrest [Fatal]
  - Cardiogenic shock [Fatal]
  - Cardiac disorder [Unknown]
  - Coronary artery disease [Fatal]
